FAERS Safety Report 4434242-6 (Version None)
Quarter: 2004Q3

REPORT INFORMATION
  Report Type: 
  Country: None (occurrence: None)
  Receive Date: 20040726
  Receipt Date: 20040331
  Transmission Date: 20050211
  Serious: No
  Sender: FDA-Public Use
  Company Number: USA040157546

PATIENT
  Age: 81 Year
  Sex: Female
  Weight: 53 kg

DRUGS (6)
  1. FORTEO [Suspect]
     Dosage: 20 UG/DAY
     Dates: start: 20030908, end: 20040319
  2. METOROLOTION (METRONIDAZOLE) [Concomitant]
  3. CALCIUM W/MAGNESIUM [Concomitant]
  4. WHEAT-GERM OIL [Concomitant]
  5. THYROPHIN PMG [Concomitant]
  6. VITAMINS WITH MINERALS [Concomitant]

REACTIONS (4)
  - BLOOD ALKALINE PHOSPHATASE INCREASED [None]
  - BONE DENSITY DECREASED [None]
  - FATIGUE [None]
  - VITAMIN B COMPLEX DEFICIENCY [None]
